FAERS Safety Report 13726958 (Version 1)
Quarter: 2017Q3

REPORT INFORMATION
  Report Type: Spontaneous
  Country: US (occurrence: US)
  Receive Date: 20170706
  Receipt Date: 20170706
  Transmission Date: 20171127
  Serious: No
  Sender: FDA-Public Use
  Company Number: US-PFIZER INC-2017291656

PATIENT
  Age: 58 Year
  Sex: Female

DRUGS (1)
  1. VENLAFAXINE HCL [Suspect]
     Active Substance: VENLAFAXINE HYDROCHLORIDE
     Dosage: 150-225MG DAILY

REACTIONS (5)
  - Dizziness [Unknown]
  - Thinking abnormal [Unknown]
  - Intentional product misuse [Unknown]
  - Feeling abnormal [Unknown]
  - Malaise [Unknown]
